FAERS Safety Report 9820475 (Version 1)
Quarter: 2013Q4

REPORT INFORMATION
  Report Type: Spontaneous
  Country: US (occurrence: None)
  Receive Date: 20131028
  Receipt Date: 20131028
  Transmission Date: 20140711
  Serious: No
  Sender: FDA-Public Use
  Company Number: 2013US002488

PATIENT
  Age: 44 Year
  Sex: Male
  Weight: 68 kg

DRUGS (1)
  1. ICLUSIG [Suspect]
     Indication: ACUTE LYMPHOCYTIC LEUKAEMIA
     Route: 048
     Dates: start: 20130613, end: 201308

REACTIONS (1)
  - Liver function test abnormal [None]
